FAERS Safety Report 8431158-5 (Version None)
Quarter: 2012Q2

REPORT INFORMATION
  Report Type: 
  Country: None (occurrence: None)
  Receive Date: 20120612
  Receipt Date: 20120522
  Transmission Date: 20120825
  Serious: Yes (Hospitalization)
  Sender: FDA-Public Use
  Company Number: PHHO2012NL008733

PATIENT
  Sex: Male
  Weight: 109 kg

DRUGS (33)
  1. SUTENT [Suspect]
     Dosage: 37.5 MG, QD
     Route: 048
     Dates: start: 20120519
  2. CRESTOR [Suspect]
     Dosage: UNK
     Dates: start: 20120404
  3. VICTOZA [Concomitant]
     Dosage: UNK
     Dates: start: 20120502
  4. PERSANTINE [Concomitant]
     Dosage: 200 MG, BID
     Dates: start: 20090201
  5. METFORMIN HCL [Suspect]
     Dosage: 500 MG, TID
     Dates: start: 20080101
  6. ALLOPURINOL [Concomitant]
     Dosage: 300 MG, QD
     Dates: start: 20060101
  7. CODEINE SULFATE [Concomitant]
     Dosage: 10 MG, UNK
     Dates: start: 20110211
  8. DIOVAN HCT [Concomitant]
     Dosage: 80/12.5 MG
     Dates: start: 20110505
  9. MOVICOLON [Concomitant]
     Dosage: UNK
     Dates: start: 20120223
  10. GLICLAZIDE [Concomitant]
     Dosage: 30 MG, TID
     Dates: start: 20080101
  11. GLICLAZIDE [Concomitant]
     Dosage: 30 MG, BID
     Dates: end: 20120403
  12. SIMVASTATIN [Concomitant]
     Dosage: 40 MG, QD
     Dates: start: 20090201
  13. SUTENT [Suspect]
     Dosage: 37.5 MG, QD
     Route: 048
     Dates: start: 20100712, end: 20120517
  14. AMLODIPINE [Concomitant]
     Dosage: 10 MG, QD
     Dates: start: 20100927
  15. HYDROCHLOROTHIAZIDE [Concomitant]
     Dosage: 12.5 MG, QD
     Dates: start: 20110429, end: 20110504
  16. EUTHYROX [Concomitant]
     Dosage: 100 UG, QD
     Dates: start: 20111117, end: 20111121
  17. EUTHYROX [Concomitant]
     Dosage: 125 UG, QD
     Dates: start: 20120207, end: 20120501
  18. EUTHYROX [Concomitant]
     Dosage: 150 UG, QD
     Dates: start: 20120502
  19. ACETAMINOPHEN [Concomitant]
     Dosage: 500-1000 MG
     Dates: start: 20110506
  20. CRESTOR [Suspect]
     Dosage: 10 MG, QD
     Dates: start: 20120410
  21. VISADRON [Concomitant]
  22. GLICLAZIDE [Concomitant]
     Dosage: 30 MG, TID
     Dates: start: 20120404, end: 20120515
  23. AMLODIPINE [Concomitant]
     Dosage: 5 MG, QD
     Dates: start: 20100831, end: 20100914
  24. CARBASALATE [Concomitant]
     Dosage: 100 MG, QD
     Dates: start: 20090201
  25. ACTIQ [Concomitant]
     Dosage: 200 UG, UNK
     Dates: start: 20111124
  26. CETOMACROGOL (S) [Concomitant]
     Dosage: UNK
     Dates: start: 20090101
  27. GLICLAZIDE [Concomitant]
     Dosage: 80 MG, TID
     Dates: start: 20120516
  28. AMLODIPINE [Concomitant]
     Dosage: 5 MG, QD
     Dates: start: 20100920, end: 20100926
  29. LEVOTHYROXINE SODIUM [Concomitant]
     Dosage: 100 UG, QD
     Dates: start: 20111104, end: 20111116
  30. EUTHYROX [Concomitant]
     Dosage: 100 UG, QD
     Dates: start: 20111125, end: 20120206
  31. SUTENT [Suspect]
     Indication: METASTATIC RENAL CELL CARCINOMA
     Dosage: UNK
     Route: 048
     Dates: start: 20100622
  32. SIMVASTATIN [Concomitant]
     Dosage: 40 MG, QD
     Dates: start: 20090404, end: 20120409
  33. EUTHYROX [Concomitant]
     Dosage: 150 UG, QD
     Dates: start: 20111122, end: 20111124

REACTIONS (3)
  - HEPATIC FUNCTION ABNORMAL [None]
  - DIARRHOEA [None]
  - BACTERAEMIA [None]
